FAERS Safety Report 6202312-8 (Version None)
Quarter: 2009Q2

REPORT INFORMATION
  Report Type: 
  Country: None (occurrence: None)
  Receive Date: 20090526
  Receipt Date: 20090518
  Transmission Date: 20091009
  Serious: Yes (Other)
  Sender: FDA-Public Use
  Company Number: US-GILEAD-2009-0021173

PATIENT
  Sex: Female

DRUGS (15)
  1. LETAIRIS [Suspect]
     Indication: PULMONARY ARTERIAL HYPERTENSION
     Route: 048
     Dates: start: 20090127, end: 20090310
  2. TOPROL-XL [Concomitant]
  3. CARDIZEM [Concomitant]
  4. ZOCOR [Concomitant]
  5. ASPIRIN [Concomitant]
  6. FUROSEMIDE [Concomitant]
  7. COUMADIN [Concomitant]
  8. LEVOXYL [Concomitant]
  9. XYZAL [Concomitant]
  10. ZEGERID [Concomitant]
  11. LOVAZA [Concomitant]
  12. LUTERA [Concomitant]
  13. CO-ENZYME Q12 [Concomitant]
  14. VITAMIN B-12 [Concomitant]
  15. CALCIUM CITRATE [Concomitant]

REACTIONS (2)
  - HAEMOLYTIC ANAEMIA [None]
  - THROMBOCYTOPENIA [None]
